FAERS Safety Report 12780375 (Version 1)
Quarter: 2016Q3

REPORT INFORMATION
  Report Type: Spontaneous
  Country: US (occurrence: US)
  Receive Date: 20160926
  Receipt Date: 20160926
  Transmission Date: 20161109
  Serious: Yes (Death)
  Sender: FDA-Public Use
  Company Number: PHHY2016US131681

PATIENT
  Age: 50 Year
  Sex: Female

DRUGS (1)
  1. CAMBIA [Suspect]
     Active Substance: DICLOFENAC POTASSIUM
     Indication: MIGRAINE WITHOUT AURA
     Dosage: 50 MG, UNK (1 PACKET WITH 1 TO 2 OUNCES OF WATER )
     Route: 048
     Dates: start: 20160328, end: 20160920

REACTIONS (1)
  - Death [Fatal]
